FAERS Safety Report 8225702-0 (Version None)
Quarter: 2012Q1

REPORT INFORMATION
  Report Type: 
  Country: None (occurrence: None)
  Receive Date: 20120321
  Receipt Date: 20120312
  Transmission Date: 20120608
  Serious: Yes (Other)
  Sender: FDA-Public Use
  Company Number: CA-VERTEX PHARMACEUTICALS INC.-AE-2012-003608

PATIENT
  Sex: Male

DRUGS (3)
  1. INCIVEK [Suspect]
     Indication: HEPATITIS C
     Route: 048
     Dates: start: 20120124, end: 20120306
  2. PEGINTERFERON [Concomitant]
     Indication: HEPATITIS C
     Dates: end: 20120308
  3. RIBAVIRIN [Concomitant]
     Indication: HEPATITIS C
     Dates: end: 20120308

REACTIONS (2)
  - SWELLING FACE [None]
  - SKIN EXFOLIATION [None]
